FAERS Safety Report 14528354 (Version 1)
Quarter: 2018Q1

REPORT INFORMATION
  Report Type: Report from Study
  Country: US (occurrence: US)
  Receive Date: 20180214
  Receipt Date: 20180214
  Transmission Date: 20180509
  Serious: Yes (Other)
  Sender: FDA-Public Use
  Company Number: US-AMGEN-USASL2018018357

PATIENT
  Age: 60 Year
  Sex: Female

DRUGS (2)
  1. REPATHA [Suspect]
     Active Substance: EVOLOCUMAB
     Indication: BLOOD CHOLESTEROL ABNORMAL
     Dosage: 140 MG, Q2WK
     Route: 065
  2. REPATHA [Suspect]
     Active Substance: EVOLOCUMAB
     Dosage: 140 MG, QMO
     Route: 065

REACTIONS (8)
  - Pain [Recovered/Resolved]
  - Systemic lupus erythematosus [Unknown]
  - Pyrexia [Not Recovered/Not Resolved]
  - Contusion [Recovered/Resolved]
  - Blood cholesterol increased [Unknown]
  - Off label use [Unknown]
  - Mass [Recovered/Resolved]
  - Chills [Not Recovered/Not Resolved]
